FAERS Safety Report 7450749-1 (Version None)
Quarter: 2011Q2

REPORT INFORMATION
  Report Type: 
  Country: None (occurrence: None)
  Receive Date: 20110502
  Receipt Date: 20110425
  Transmission Date: 20111010
  Serious: Yes (Hospitalization)
  Sender: FDA-Public Use
  Company Number: US-ELI_LILLY_AND_COMPANY-US201102003723

PATIENT
  Sex: Female

DRUGS (1)
  1. ADCIRCA [Suspect]
     Dosage: 40 MG, DAILY (1/D)
     Route: 048
     Dates: start: 20100712

REACTIONS (2)
  - RIGHT VENTRICULAR FAILURE [None]
  - ASCITES [None]
